FAERS Safety Report 8839886 (Version 1)
Quarter: 2012Q4

REPORT INFORMATION
  Report Type: Spontaneous
  Country: GB (occurrence: None)
  Receive Date: 20121011
  Receipt Date: 20121011
  Transmission Date: 20130627
  Serious: Yes (Hospitalization)
  Sender: FDA-Public Use
  Company Number: PNIS20120026

PATIENT
  Age: 70 Year
  Sex: Female

DRUGS (6)
  1. PREDNISOLONE [Suspect]
     Dosage: 10 mg, 1 in 1 D, oral
     Route: 048
  2. DIGOXIN [Concomitant]
  3. CITALOPRAM [Concomitant]
  4. WARFARIN [Concomitant]
  5. SALBUTAMOL [Concomitant]
  6. ATROVENT (IPRATROPIUM BROMIDE) (IPRATROPIUM BROMIDE) [Concomitant]

REACTIONS (2)
  - Discomfort [None]
  - Abscess intestinal [None]
